FAERS Safety Report 10633829 (Version 1)
Quarter: 2014Q4

REPORT INFORMATION
  Report Type: Spontaneous
  Country: US (occurrence: None)
  Receive Date: 20141203
  Receipt Date: 20141203
  Transmission Date: 20150529
  Serious: Yes (Death)
  Sender: FDA-Public Use
  Company Number: None

PATIENT
  Age: 70 Year
  Sex: Male
  Weight: 79.9 kg

DRUGS (2)
  1. DAUNORUBICIN [Suspect]
     Active Substance: DAUNORUBICIN
     Dates: start: 20141117
  2. CYTARABINE. [Suspect]
     Active Substance: CYTARABINE
     Dates: start: 20141121

REACTIONS (11)
  - Respiratory arrest [None]
  - Pulmonary embolism [None]
  - Pancytopenia [None]
  - Intracardiac thrombus [None]
  - Chest discomfort [None]
  - Acute myeloid leukaemia [None]
  - Deep vein thrombosis [None]
  - Fatigue [None]
  - Atrial fibrillation [None]
  - Haemorrhage intracranial [None]
  - Petechiae [None]

NARRATIVE: CASE EVENT DATE: 20141127
